FAERS Safety Report 10232310 (Version 1)
Quarter: 2014Q2

REPORT INFORMATION
  Report Type: Spontaneous
  Country: US (occurrence: None)
  Receive Date: 20140610
  Receipt Date: 20140610
  Transmission Date: 20141212
  Serious: Yes (Hospitalization)
  Sender: FDA-Public Use
  Company Number: None

PATIENT
  Age: 83 Year
  Sex: Female
  Weight: 80 kg

DRUGS (6)
  1. RIVAROXABAN 20 MG JANSSEN [Suspect]
     Indication: ATRIAL FIBRILLATION
     Route: 048
  2. ESOMEPRAZOLE [Concomitant]
  3. LEVETIRACETAM [Concomitant]
  4. LORAZEPAM [Concomitant]
  5. METOPROLOL [Concomitant]
  6. ROSUVASTATIN [Concomitant]

REACTIONS (2)
  - Upper gastrointestinal haemorrhage [None]
  - Anaemia [None]
